FAERS Safety Report 4751028-3 (Version None)
Quarter: 2005Q3

REPORT INFORMATION
  Report Type: 
  Country: None (occurrence: None)
  Receive Date: 20050824
  Receipt Date: 20040908
  Transmission Date: 20060218
  Serious: Yes (Other)
  Sender: FDA-Public Use
  Company Number: JP-SP-2004-03289

PATIENT
  Age: 74 Year
  Sex: Male

DRUGS (4)
  1. IMMUCYST [Suspect]
     Indication: BLADDER CANCER
     Dosage: 6 INSTILLATIONS
     Route: 043
     Dates: start: 20040706, end: 20040810
  2. IMMUCYST [Suspect]
     Dosage: 6 INSTILLATIONS
     Route: 043
     Dates: start: 20040706, end: 20040810
  3. TEGAFUR [Concomitant]
     Dosage: 600 MG/DAY
     Route: 048
     Dates: start: 20021115, end: 20040705
  4. ANTIBIOTIC [Concomitant]
     Route: 048

REACTIONS (2)
  - NEUROGENIC BLADDER [None]
  - URINARY RETENTION [None]
